FAERS Safety Report 20152258 (Version 1)
Quarter: 2021Q4

REPORT INFORMATION
  Report Type: Spontaneous
  Country: CH (occurrence: CH)
  Receive Date: 20211206
  Receipt Date: 20211206
  Transmission Date: 20220303
  Serious: Yes (Hospitalization)
  Sender: FDA-Public Use
  Company Number: CH-HQ SPECIALTY-CH-2021INT000233

PATIENT
  Age: 2 Year
  Sex: Male

DRUGS (23)
  1. DEXMEDETOMIDINE HYDROCHLORIDE [Suspect]
     Active Substance: DEXMEDETOMIDINE HYDROCHLORIDE
     Indication: Product used for unknown indication
     Dosage: 200MCG / 2ML I.V. PSE (0.4- 2 ML / H) ; RECEIVED DEXMEDETOMIDINE ON 29 OCTOBER 2021 AT 8:30 A.M.
     Route: 041
     Dates: start: 20211029, end: 20211031
  2. FENTANYL [Suspect]
     Active Substance: FENTANYL
     Indication: Product used for unknown indication
     Dosage: 10 MCG/ML (0.5-1 ?G/KG) (28 MCG,1 TOTAL)
     Route: 042
     Dates: start: 20211102, end: 20211102
  3. HYDROMORPHONE [Suspect]
     Active Substance: HYDROMORPHONE
     Indication: Product used for unknown indication
     Dosage: 1.14- 5.7 ML/H (2 -10.00 ?G/KG/H)
     Route: 041
     Dates: start: 20211028, end: 20211029
  4. MIDAZOLAM [Suspect]
     Active Substance: MIDAZOLAM
     Indication: Product used for unknown indication
     Dosage: 0.25 TO 1.25 ML/H (0.05-0.25 MG/KG/H)
     Route: 041
     Dates: start: 20211028, end: 20211030
  5. PROPOFOL [Suspect]
     Active Substance: PROPOFOL
     Indication: Product used for unknown indication
     Dosage: 1% 10MG/ML 6.75 - 13.5 MG (0.5-1 MG/KG) (91 MG,1 TOTAL)
     Route: 065
     Dates: start: 20211101, end: 20211102
  6. PROPOFOL [Suspect]
     Active Substance: PROPOFOL
     Dosage: 1% (2.8 MG,1 TOTAL)
     Route: 065
     Dates: start: 20211102, end: 20211103
  7. DEXAMETHASONE [Concomitant]
     Active Substance: DEXAMETHASONE
     Indication: Product used for unknown indication
     Dosage: UNK
     Route: 042
     Dates: start: 20211102
  8. DEXAMETHASONE [Concomitant]
     Active Substance: DEXAMETHASONE
     Dosage: UNK
     Route: 048
     Dates: start: 20211102, end: 20211107
  9. LEVOFLOXACINE                      /01278901/ [Concomitant]
     Indication: Product used for unknown indication
     Dosage: UNK
     Route: 042
     Dates: start: 20211028, end: 20211029
  10. DEXERYL                            /00557601/ [Concomitant]
     Indication: Product used for unknown indication
     Dosage: UNK
     Route: 065
     Dates: start: 20211030, end: 20211030
  11. NEXIUM                             /01479302/ [Concomitant]
     Indication: Product used for unknown indication
     Dosage: UNK
     Route: 042
     Dates: start: 20211029, end: 20211030
  12. LACRYCON                           /02211501/ [Concomitant]
     Indication: Product used for unknown indication
     Dosage: UNK
     Route: 047
     Dates: start: 20211028
  13. MELATONIN [Concomitant]
     Active Substance: MELATONIN
     Indication: Product used for unknown indication
     Dosage: UNK
     Route: 048
     Dates: start: 20211030
  14. OSPEN                              /00001801/ [Concomitant]
     Indication: Product used for unknown indication
     Dosage: UNK
     Route: 048
     Dates: start: 20211030
  15. MOVICOL JUNIOR NEUTRAL [Concomitant]
     Indication: Product used for unknown indication
     Dosage: UNK
     Route: 048
     Dates: start: 20211031
  16. OMEPRAZOLE [Concomitant]
     Active Substance: OMEPRAZOLE
     Indication: Product used for unknown indication
     Dosage: UNK
     Route: 048
     Dates: start: 20211031
  17. LASIX                              /00032601/ [Concomitant]
     Indication: Product used for unknown indication
     Dosage: UNK UNK, PRN
     Route: 042
     Dates: start: 20211028
  18. CLEMASTINE FUMARATE [Concomitant]
     Active Substance: CLEMASTINE FUMARATE
     Indication: Product used for unknown indication
     Dosage: UNK UNK, PRN
     Route: 042
     Dates: start: 20211029
  19. BULBOID [Concomitant]
     Indication: Product used for unknown indication
     Dosage: UNK UNK, PRN
     Route: 054
     Dates: start: 20211030
  20. ACETAMINOPHEN [Concomitant]
     Active Substance: ACETAMINOPHEN
     Indication: Product used for unknown indication
     Dosage: UNK UNK, PRN
     Route: 042
     Dates: start: 20211029, end: 20211101
  21. ACETAMINOPHEN [Concomitant]
     Active Substance: ACETAMINOPHEN
     Dosage: UNK UNK, PRN
     Route: 048
     Dates: start: 20211031
  22. HYDROXYZINE [Concomitant]
     Active Substance: HYDROXYZINE HYDROCHLORIDE
     Indication: Product used for unknown indication
     Dosage: UNK UNK, PRN
     Route: 048
     Dates: start: 20211101
  23. CALCIUM CHLORIDE [Concomitant]
     Active Substance: CALCIUM CHLORIDE
     Indication: Product used for unknown indication
     Dosage: UNK UNK, PRN
     Route: 042
     Dates: start: 20211031

REACTIONS (6)
  - Encephalopathy [Not Recovered/Not Resolved]
  - Disturbance in attention [Not Recovered/Not Resolved]
  - Dyskinesia [Recovered/Resolved]
  - Hypotonia [Recovered/Resolved]
  - Renal failure [Recovered/Resolved]
  - Product administered to patient of inappropriate age [Not Recovered/Not Resolved]

NARRATIVE: CASE EVENT DATE: 20211001
